FAERS Safety Report 9836114 (Version 1)
Quarter: 2014Q1

REPORT INFORMATION
  Report Type: Spontaneous
  Country: US (occurrence: US)
  Receive Date: 20140123
  Receipt Date: 20140123
  Transmission Date: 20141002
  Serious: No
  Sender: FDA-Public Use
  Company Number: US-009507513-1401USA003017

PATIENT
  Age: 33 Year
  Sex: Female

DRUGS (2)
  1. ISENTRESS [Suspect]
     Dosage: DAILY DOSE:800, ONGOING AT DELIVERY, COURSE 1
     Route: 048
  2. EMTRICITABINE (+) TENOFOVIR DISOPROXIL FUMARATE [Suspect]
     Dosage: DAILY DOSE:1, ONGOING AT DELIVERY, COURSE 1
     Route: 048

REACTIONS (1)
  - Exposure during pregnancy [Recovered/Resolved]
